FAERS Safety Report 16724438 (Version 1)
Quarter: 2019Q3

REPORT INFORMATION
  Report Type: Spontaneous
  Country: US (occurrence: US)
  Receive Date: 20190821
  Receipt Date: 20190821
  Transmission Date: 20191005
  Serious: Yes (Hospitalization)
  Sender: FDA-Public Use
  Company Number: US-AMNEAL PHARMACEUTICALS-2019AMN00903

PATIENT
  Age: 69 Year
  Sex: Female
  Weight: 74.83 kg

DRUGS (5)
  1. FLEXERIL [Concomitant]
     Active Substance: CYCLOBENZAPRINE HYDROCHLORIDE
     Indication: PRODUCT USED FOR UNKNOWN INDICATION
     Dosage: UNK
     Route: 065
  2. PF-06290510;PLACEBO [Suspect]
     Active Substance: INVESTIGATIONAL PRODUCT
     Indication: IMMUNISATION
     Dosage: UNK
     Route: 065
     Dates: start: 20180620, end: 20180620
  3. HYDROMORPHONE HYDROCHLORIDE. [Suspect]
     Active Substance: HYDROMORPHONE HYDROCHLORIDE
     Indication: PAIN
     Dosage: 0.5 UNK, EVERY 1 HOUR, AS NEEDED
     Route: 042
     Dates: start: 20180709, end: 20180709
  4. OXYCODONE HYDROCHLORIDE. [Suspect]
     Active Substance: OXYCODONE HYDROCHLORIDE
     Indication: PAIN
     Dosage: 1 TABLETS EVERY 4 HOURS, AS NEEDED
     Route: 048
     Dates: start: 20180708, end: 20180709
  5. VALIUM [Suspect]
     Active Substance: DIAZEPAM
     Indication: PAIN
     Dosage: 1 TABLETS EVERY 6 HOURS, AS NEEDED
     Route: 048
     Dates: start: 20180709, end: 20180709

REACTIONS (3)
  - Hypercapnia [Unknown]
  - Metabolic encephalopathy [Recovered/Resolved]
  - Overdose [Unknown]
